FAERS Safety Report 6215357-9 (Version None)
Quarter: 2009Q2

REPORT INFORMATION
  Report Type: 
  Country: None (occurrence: None)
  Receive Date: 20090604
  Receipt Date: 20090529
  Transmission Date: 20091009
  Serious: Yes (Hospitalization, Other)
  Sender: FDA-Public Use
  Company Number: US-ABBOTT-09P-163-0575022-00

PATIENT
  Sex: Male
  Weight: 12.258 kg

DRUGS (6)
  1. HUMIRA [Suspect]
     Indication: PSORIATIC ARTHROPATHY
     Route: 058
     Dates: start: 20070101, end: 20080101
  2. HUMIRA [Suspect]
     Route: 058
     Dates: start: 20090514
  3. LOPRESSOR [Concomitant]
     Indication: HYPERTENSION
  4. CLONIDINE [Concomitant]
     Indication: HYPERTENSION
  5. XANAX [Concomitant]
     Indication: ANXIETY
  6. OXYCONTIN [Concomitant]
     Indication: ARTHRITIS

REACTIONS (10)
  - FATIGUE [None]
  - INFECTION [None]
  - JOINT SWELLING [None]
  - LIMB INJURY [None]
  - MEDICAL DEVICE COMPLICATION [None]
  - NAUSEA [None]
  - OEDEMA PERIPHERAL [None]
  - PAIN IN EXTREMITY [None]
  - STAPHYLOCOCCAL INFECTION [None]
  - SURGERY [None]
